FAERS Safety Report 16219142 (Version 2)
Quarter: 2020Q4

REPORT INFORMATION
  Report Type: Spontaneous
  Country: US (occurrence: US)
  Receive Date: 20190419
  Receipt Date: 20201023
  Transmission Date: 20210113
  Serious: Yes (Death, Hospitalization, Other)
  Sender: FDA-Public Use
  Company Number: US-ASTRAZENECA-2019SE57736

PATIENT
  Age: 31 Year
  Sex: Female
  Weight: 183.7 kg

DRUGS (95)
  1. BENZONATATE. [Concomitant]
     Active Substance: BENZONATATE
     Dates: start: 2012, end: 2014
  2. NITROFURANTOIN. [Concomitant]
     Active Substance: NITROFURANTOIN
     Dates: start: 2012, end: 2014
  3. IODOFORM [Concomitant]
     Active Substance: IODOFORM
     Dates: start: 2012, end: 2014
  4. SMZ/TMP [Concomitant]
     Active Substance: SULFAMETHOXAZOLE\TRIMETHOPRIM
     Dates: start: 2012, end: 2014
  5. CARVEDILOL. [Concomitant]
     Active Substance: CARVEDILOL
     Dates: start: 2012, end: 2014
  6. LACTULOSE. [Concomitant]
     Active Substance: LACTULOSE
     Dates: start: 2012, end: 2014
  7. REGLAN [Concomitant]
     Active Substance: METOCLOPRAMIDE HYDROCHLORIDE
  8. HEPARIN [Concomitant]
     Active Substance: HEPARIN SODIUM
  9. AMLODIPINE [Concomitant]
     Active Substance: AMLODIPINE BESYLATE
     Indication: HYPERTENSION
     Dates: start: 2012, end: 2013
  10. LISINOPRIL/HCTZ [Concomitant]
     Active Substance: HYDROCHLOROTHIAZIDE\LISINOPRIL
     Dates: start: 2012, end: 2014
  11. FERROUS SULFATE. [Concomitant]
     Active Substance: FERROUS SULFATE
     Dates: start: 2012, end: 2014
  12. MORPHINE [Concomitant]
     Active Substance: MORPHINE
     Dates: start: 2012, end: 2014
  13. ASMANEX [Concomitant]
     Active Substance: MOMETASONE FUROATE
     Dates: start: 2012, end: 2014
  14. NOVOLOG [Concomitant]
     Active Substance: INSULIN ASPART
     Dates: start: 2012, end: 2014
  15. MICARDIS [Concomitant]
     Active Substance: TELMISARTAN
     Dates: start: 2012, end: 2014
  16. SENNA [Concomitant]
     Active Substance: SENNA LEAF\SENNOSIDES\SENNOSIDES A AND B
     Dates: start: 2012, end: 2014
  17. LASIX [Concomitant]
     Active Substance: FUROSEMIDE
  18. COUMADIN [Concomitant]
     Active Substance: WARFARIN SODIUM
  19. DILAUDID [Concomitant]
     Active Substance: HYDROMORPHONE HYDROCHLORIDE
  20. NEXIUM [Suspect]
     Active Substance: ESOMEPRAZOLE MAGNESIUM
     Indication: GASTROOESOPHAGEAL REFLUX DISEASE
     Route: 048
     Dates: start: 20100730, end: 20141205
  21. PROTONIX [Suspect]
     Active Substance: PANTOPRAZOLE SODIUM
     Indication: GASTROOESOPHAGEAL REFLUX DISEASE
     Dosage: GENERIC
     Route: 065
     Dates: start: 20130630, end: 20160823
  22. TRAMADOL. [Concomitant]
     Active Substance: TRAMADOL
     Indication: ANALGESIC THERAPY
     Dates: start: 2011, end: 2015
  23. ONDANSETRON [Concomitant]
     Active Substance: ONDANSETRON
     Dates: start: 2012, end: 2014
  24. CLONIDINE. [Concomitant]
     Active Substance: CLONIDINE
     Dates: start: 2012, end: 2014
  25. GABAPENTIN. [Concomitant]
     Active Substance: GABAPENTIN
     Dates: start: 2012, end: 2014
  26. ADVAIR DISKUS [Concomitant]
     Active Substance: FLUTICASONE PROPIONATE\SALMETEROL XINAFOATE
     Dates: start: 2012, end: 2014
  27. HUMALOG [Concomitant]
     Active Substance: INSULIN LISPRO
     Dates: start: 2012, end: 2014
  28. CIPROFLOXACIN. [Concomitant]
     Active Substance: CIPROFLOXACIN
     Dates: start: 2012, end: 2014
  29. CHLORTHALIDONE. [Concomitant]
     Active Substance: CHLORTHALIDONE
     Dates: start: 2012, end: 2014
  30. VASOLEX [Concomitant]
     Active Substance: BALSAM PERU\CASTOR OIL\TRYPSIN
     Dates: start: 2012, end: 2014
  31. POTASSIUM CHLORIDE. [Concomitant]
     Active Substance: POTASSIUM CHLORIDE
     Dates: start: 2012, end: 2014
  32. NYSTATIN. [Concomitant]
     Active Substance: NYSTATIN
     Dates: start: 2012, end: 2014
  33. VANCOMYCIN [Concomitant]
     Active Substance: VANCOMYCIN
  34. NEXIUM [Suspect]
     Active Substance: ESOMEPRAZOLE MAGNESIUM
     Indication: GASTROOESOPHAGEAL REFLUX DISEASE
     Route: 048
     Dates: start: 201007, end: 201503
  35. VITAMIN B12 [Concomitant]
     Active Substance: CYANOCOBALAMIN
     Indication: ANAEMIA
     Dates: start: 2015, end: 2017
  36. METHYLPREDNISOLONE. [Concomitant]
     Active Substance: METHYLPREDNISOLONE
     Dates: start: 2012, end: 2014
  37. KETOCONAZOLE. [Concomitant]
     Active Substance: KETOCONAZOLE
     Dates: start: 2012, end: 2014
  38. CLINDAMYCIN. [Concomitant]
     Active Substance: CLINDAMYCIN
     Dates: start: 2012, end: 2014
  39. METOLAZONE. [Concomitant]
     Active Substance: METOLAZONE
     Dates: start: 2012, end: 2014
  40. DULOXETINE. [Concomitant]
     Active Substance: DULOXETINE
     Dates: start: 2012, end: 2014
  41. FERRITIN [Concomitant]
     Active Substance: FERRITIN
     Dates: start: 2012, end: 2014
  42. VALTURNA [Concomitant]
     Active Substance: ALISKIREN HEMIFUMARATE\VALSARTAN
     Dates: start: 2012, end: 2014
  43. OXYGEN. [Concomitant]
     Active Substance: OXYGEN
  44. IRON [Concomitant]
     Active Substance: IRON
  45. LABETALOL [Concomitant]
     Active Substance: LABETALOL\LABETALOL HYDROCHLORIDE
  46. SODIUM CHLORIDE. [Concomitant]
     Active Substance: SODIUM CHLORIDE
  47. NEXIUM [Suspect]
     Active Substance: ESOMEPRAZOLE MAGNESIUM
     Indication: GASTROOESOPHAGEAL REFLUX DISEASE
     Dosage: GENERIC
     Route: 065
     Dates: start: 20150101, end: 20151214
  48. PROTONIX [Suspect]
     Active Substance: PANTOPRAZOLE SODIUM
     Indication: GASTROOESOPHAGEAL REFLUX DISEASE
     Dosage: DELAYED RELEASE
     Route: 048
     Dates: start: 20140105
  49. LISINOPRIL. [Concomitant]
     Active Substance: LISINOPRIL
     Indication: HYPERTENSION
     Dates: start: 2011, end: 2015
  50. CYCLOBENZAPRINE. [Concomitant]
     Active Substance: CYCLOBENZAPRINE
     Dates: start: 2012, end: 2014
  51. OXYCODONE HYDROCHLORIDE. [Concomitant]
     Active Substance: OXYCODONE HYDROCHLORIDE
     Dates: start: 2012, end: 2014
  52. NAPROXEN SODIUM. [Concomitant]
     Active Substance: NAPROXEN SODIUM
     Dates: start: 2012, end: 2014
  53. MINOCYCLINE [Concomitant]
     Active Substance: MINOCYCLINE HYDROCHLORIDE
     Dates: start: 2012, end: 2014
  54. CEFUROXIME. [Concomitant]
     Active Substance: CEFUROXIME
     Dates: start: 2012, end: 2014
  55. BYDUREON [Concomitant]
     Active Substance: EXENATIDE
     Dates: start: 2012, end: 2014
  56. ROCEPHIN [Concomitant]
     Active Substance: CEFTRIAXONE SODIUM
  57. PRILOSEC [Suspect]
     Active Substance: OMEPRAZOLE MAGNESIUM
     Indication: GASTROOESOPHAGEAL REFLUX DISEASE
     Dosage: GENERIC
     Route: 065
     Dates: start: 20141207, end: 20160813
  58. PEPCID AC [Concomitant]
     Active Substance: FAMOTIDINE
     Dates: start: 2012, end: 2014
  59. DOXYCYCLINE. [Concomitant]
     Active Substance: DOXYCYCLINE
     Dates: start: 2012, end: 2014
  60. LEVOFLOXACIN. [Concomitant]
     Active Substance: LEVOFLOXACIN
     Dates: start: 2012, end: 2014
  61. FENTANYL. [Concomitant]
     Active Substance: FENTANYL
     Dates: start: 2012, end: 2014
  62. MIRALAX [Concomitant]
     Active Substance: POLYETHYLENE GLYCOL 3350
     Dates: start: 2012, end: 2014
  63. HYDRALAZINE [Concomitant]
     Active Substance: HYDRALAZINE HYDROCHLORIDE
     Dates: start: 2012, end: 2014
  64. SILVER SULFADIAZINE. [Concomitant]
     Active Substance: SILVER SULFADIAZINE
     Dates: start: 2012, end: 2014
  65. TOBRAMYCIN. [Concomitant]
     Active Substance: TOBRAMYCIN
     Dates: start: 2012, end: 2014
  66. FOLATE [Concomitant]
     Active Substance: FOLATE SODIUM
  67. NEXIUM [Suspect]
     Active Substance: ESOMEPRAZOLE MAGNESIUM
     Indication: GASTROOESOPHAGEAL REFLUX DISEASE
     Route: 048
     Dates: start: 20120119
  68. BUTALBIT/APAP/CAFF [Concomitant]
     Dates: start: 2012, end: 2014
  69. MAGNESIUM OXIDE. [Concomitant]
     Active Substance: MAGNESIUM OXIDE
     Dates: start: 2012, end: 2014
  70. HYDROCODONE-APAP [Concomitant]
     Active Substance: ACETAMINOPHEN\HYDROCODONE
     Dates: start: 2012, end: 2014
  71. AUGMENTIN [Concomitant]
     Active Substance: AMOXICILLIN\CLAVULANATE POTASSIUM
     Dates: start: 2012, end: 2014
  72. TRAZODONE [Concomitant]
     Active Substance: TRAZODONE HYDROCHLORIDE
     Dates: start: 2012, end: 2014
  73. LANTUS [Concomitant]
     Active Substance: INSULIN GLARGINE
     Dates: start: 2012, end: 2014
  74. COMBIVENT [Concomitant]
     Active Substance: ALBUTEROL SULFATE\IPRATROPIUM BROMIDE
     Dates: start: 2012, end: 2014
  75. MAGNESIUM CITRATE. [Concomitant]
     Active Substance: MAGNESIUM CITRATE
     Dates: start: 2012, end: 2014
  76. COLCHICINE. [Concomitant]
     Active Substance: COLCHICINE
     Dates: start: 2012, end: 2014
  77. ALBUTEROL. [Concomitant]
     Active Substance: ALBUTEROL
     Dates: start: 2012, end: 2014
  78. A/B OTIC [Concomitant]
     Dates: start: 2012, end: 2014
  79. DEMEROL [Concomitant]
     Active Substance: MEPERIDINE HYDROCHLORIDE
  80. LACTIC ACID. [Concomitant]
     Active Substance: LACTIC ACID
  81. FLEXERIL [Concomitant]
     Active Substance: CYCLOBENZAPRINE HYDROCHLORIDE
  82. PRILOSEC [Suspect]
     Active Substance: OMEPRAZOLE MAGNESIUM
     Indication: GASTROOESOPHAGEAL REFLUX DISEASE
     Dosage: DALYED RELEASE
     Route: 048
     Dates: start: 20160222
  83. ASPIRIN. [Concomitant]
     Active Substance: ASPIRIN
     Indication: ANALGESIC THERAPY
     Dates: start: 2012, end: 2017
  84. METRONIDAZOLE. [Concomitant]
     Active Substance: METRONIDAZOLE
     Dates: start: 2012, end: 2014
  85. PROMETHAZINE [Concomitant]
     Active Substance: PROMETHAZINE HYDROCHLORIDE
     Dates: start: 2012, end: 2014
  86. ATORVASTATIN [Concomitant]
     Active Substance: ATORVASTATIN
     Dates: start: 2012, end: 2014
  87. SIMVASTATIN. [Concomitant]
     Active Substance: SIMVASTATIN
     Dates: start: 2012, end: 2014
  88. MUPIROCIN. [Concomitant]
     Active Substance: MUPIROCIN
     Dates: start: 2012, end: 2014
  89. AMITRIPTYLINE [Concomitant]
     Active Substance: AMITRIPTYLINE
     Dates: start: 2012, end: 2014
  90. SYRINGE [Concomitant]
     Active Substance: DEVICE
     Dates: start: 2012, end: 2014
  91. BUDESONIDE. [Concomitant]
     Active Substance: BUDESONIDE
     Dates: start: 2012, end: 2014
  92. BENAZEPRIL HYDROCHLORIDE AND HYDROCHLOROTHIAZIDE [Concomitant]
     Active Substance: BENAZEPRIL HYDROCHLORIDE\HYDROCHLOROTHIAZIDE
     Dates: start: 2012, end: 2014
  93. NEOMYCIN/POLY/HC [Concomitant]
     Dates: start: 2012, end: 2014
  94. LOTRIMIN [Concomitant]
     Active Substance: CLOTRIMAZOLE
     Dates: start: 2012, end: 2014
  95. ULTRAM [Concomitant]
     Active Substance: TRAMADOL HYDROCHLORIDE

REACTIONS (8)
  - Acute kidney injury [Unknown]
  - End stage renal disease [Unknown]
  - Renal failure [Unknown]
  - Nephrogenic anaemia [Unknown]
  - Circulatory collapse [Fatal]
  - Tubulointerstitial nephritis [Unknown]
  - Chronic kidney disease [Unknown]
  - Renal tubular necrosis [Unknown]

NARRATIVE: CASE EVENT DATE: 2011
